FAERS Safety Report 5932823-1 (Version None)
Quarter: 2008Q4

REPORT INFORMATION
  Report Type: 
  Country: None (occurrence: None)
  Receive Date: 20081027
  Receipt Date: 20081027
  Transmission Date: 20090506
  Serious: Yes (Hospitalization)
  Sender: FDA-Public Use
  Company Number: None

PATIENT
  Sex: Male
  Weight: 72.3 kg

DRUGS (8)
  1. CYCLOPHOSPHAMIDE [Suspect]
     Dosage: 1830 MG
  2. DEXAMETHASONE [Suspect]
     Dosage: 100 MG
  3. DOXORUBICIN HYDROCHLORIDE [Suspect]
     Dosage: 90 MG
  4. G-CSF (FILGRASTIM, AMGEN) [Suspect]
     Dosage: 1800 MCG
  5. LEUCOVORIN CALCIUM [Suspect]
     Dosage: 305MG
  6. METHOTREXATE [Suspect]
     Dosage: 2745 MG
  7. RITUXIMAB (M0AHC2B8 ANTI CD2O, CHIMERIC) [Suspect]
     Dosage: 690 MG
  8. VINCRISTINE SULFATE [Suspect]
     Dosage: 2 MG

REACTIONS (8)
  - DYSPHAGIA [None]
  - FEBRILE NEUTROPENIA [None]
  - INFECTION [None]
  - MOUTH ULCERATION [None]
  - MUCOSAL INFLAMMATION [None]
  - ORAL PAIN [None]
  - OROPHARYNGEAL PAIN [None]
  - STOMATITIS [None]
